FAERS Safety Report 5107567-9 (Version None)
Quarter: 2006Q3

REPORT INFORMATION
  Report Type: 
  Country: None (occurrence: None)
  Receive Date: 20060913
  Receipt Date: 20060913
  Transmission Date: 20061208
  Serious: Yes (Hospitalization)
  Sender: FDA-Public Use
  Company Number: None

PATIENT
  Sex: Male

DRUGS (13)
  1. WARFARIN SODIUM [Suspect]
     Indication: PROPHYLAXIS
     Dosage: 3 MG DAILY PO
     Route: 048
     Dates: start: 20060117, end: 20060119
  2. APAP TAB [Concomitant]
  3. ALBUTEROL [Concomitant]
  4. CALCIUM CARBONATE WITH VIT D [Concomitant]
  5. DILTIAZEM HCL [Concomitant]
  6. POTASSIUM CHLORIDE [Concomitant]
  7. DOCUSATE [Concomitant]
  8. IPRATROPIUM BROMIDE [Concomitant]
  9. METOCLOPRAMIDE [Concomitant]
  10. METOPROLOL [Concomitant]
  11. MORPHINE [Concomitant]
  12. OMEPRAZOLE [Concomitant]
  13. QUIETIAPINE [Concomitant]

REACTIONS (2)
  - HAEMATOCRIT DECREASED [None]
  - HAEMOGLOBIN DECREASED [None]
